FAERS Safety Report 5310247-8 (Version None)
Quarter: 2007Q2

REPORT INFORMATION
  Report Type: 
  Country: None (occurrence: None)
  Receive Date: 20070427
  Receipt Date: 20070426
  Transmission Date: 20071010
  Serious: Yes (Other)
  Sender: FDA-Public Use
  Company Number: DE-BRISTOL-MYERS SQUIBB COMPANY-13761879

PATIENT

DRUGS (1)
  1. SINEMET CR [Suspect]

REACTIONS (2)
  - DRUG INEFFECTIVE [None]
  - PARALYSIS [None]
